FAERS Safety Report 17545395 (Version 1)
Quarter: 2020Q1

REPORT INFORMATION
  Report Type: Spontaneous
  Country: DE (occurrence: DE)
  Receive Date: 20200316
  Receipt Date: 20200316
  Transmission Date: 20200409
  Serious: Yes (Hospitalization, Other)
  Sender: FDA-Public Use
  Company Number: DE-MYLANLABS-2020M1026439

PATIENT
  Age: 78 Year
  Sex: Female

DRUGS (9)
  1. VINCRISTINE [Suspect]
     Active Substance: VINCRISTINE
     Indication: B-CELL LYMPHOMA
     Dosage: 3.5 MILLIGRAM, Q2WK (29 DAY)
     Route: 042
     Dates: start: 20150409, end: 20150507
  2. PREDNISONE. [Suspect]
     Active Substance: PREDNISONE
     Indication: B-CELL LYMPHOMA
     Dosage: UNK, Q2WK (D 1TO 5, 14 DAYS)
     Route: 048
     Dates: start: 20150407, end: 20150628
  3. DOXORUBICIN [Suspect]
     Active Substance: DOXORUBICIN
     Indication: B-CELL LYMPHOMA
     Dosage: 87 MILLIGRAM, Q2WK (FOR 78 DAYS)
     Route: 042
     Dates: start: 20150409, end: 20150625
  4. CYCLOPHOSPHAMIDE. [Suspect]
     Active Substance: CYCLOPHOSPHAMIDE
     Indication: B-CELL LYMPHOMA
     Dosage: 1310 MILLIGRAM, Q2WK (FOR 78 DAYS)
     Route: 042
     Dates: start: 20150409, end: 20150625
  5. PANTOPRAZOL                        /01263201/ [Concomitant]
     Active Substance: PANTOPRAZOLE
     Indication: PROPHYLAXIS AGAINST GASTROINTESTINAL ULCER
     Dosage: 40 MILLIGRAM, QD
     Route: 048
     Dates: start: 2015
  6. ENOXAPARIN SODIUM. [Concomitant]
     Active Substance: ENOXAPARIN SODIUM
     Indication: PULMONARY EMBOLISM
     Dosage: 40 MILLIGRAM, QD
     Route: 058
     Dates: start: 201503
  7. PEGFILGRASTIM [Suspect]
     Active Substance: PEGFILGRASTIM
     Indication: B-CELL LYMPHOMA
     Dosage: 6 MILLIGRAM, Q2WK (14 DAYS)
     Route: 058
     Dates: start: 20150409, end: 20150629
  8. RITUXIMAB. [Suspect]
     Active Substance: RITUXIMAB
     Indication: B-CELL LYMPHOMA
     Dosage: 630 MILLIGRAM, Q2WK
     Route: 042
     Dates: start: 20150407, end: 20150710
  9. BISOPROLOL [Concomitant]
     Active Substance: BISOPROLOL
     Indication: CARDIAC FAILURE
     Dosage: 2.5 MILLIGRAM, QD
     Route: 048

REACTIONS (7)
  - Malaise [Recovered/Resolved]
  - Interstitial lung disease [Recovered/Resolved]
  - Pneumonia aspiration [Recovered/Resolved]
  - Stomatitis [Recovered/Resolved]
  - Hypotension [Recovered/Resolved]
  - Pyrexia [Recovered/Resolved]
  - Febrile neutropenia [Recovered/Resolved]

NARRATIVE: CASE EVENT DATE: 20150514
